FAERS Safety Report 23952693 (Version 2)
Quarter: 2024Q2

REPORT INFORMATION
  Report Type: Report from Study
  Country: IL (occurrence: IL)
  Receive Date: 20240607
  Receipt Date: 20240621
  Transmission Date: 20240716
  Serious: Yes (Hospitalization, Other)
  Sender: FDA-Public Use
  Company Number: IL-SERVIER-S24004674

PATIENT
  Age: 31 Year
  Sex: Male

DRUGS (1)
  1. LONSURF [Suspect]
     Active Substance: TIPIRACIL HYDROCHLORIDE\TRIFLURIDINE
     Indication: Colon cancer metastatic
     Dosage: 55 MG, BID
     Route: 048
     Dates: start: 20240411

REACTIONS (5)
  - Intestinal obstruction [Recovered/Resolved]
  - Abdominal pain [Not Recovered/Not Resolved]
  - Product dose omission issue [Recovered/Resolved]
  - Constipation [Unknown]
  - Nausea [Not Recovered/Not Resolved]

NARRATIVE: CASE EVENT DATE: 20240516
